FAERS Safety Report 8513961 (Version 3)
Quarter: 2014Q1

REPORT INFORMATION
  Report Type: Spontaneous
  Country: US (occurrence: US)
  Receive Date: 20120416
  Receipt Date: 20140127
  Transmission Date: 20141002
  Serious: Yes (Hospitalization, Other)
  Sender: FDA-Public Use
  Company Number: US-BAYER-2012-034621

PATIENT
  Age: 27 Year
  Sex: Female
  Weight: 56.69 kg

DRUGS (4)
  1. YAZ [Suspect]
     Dosage: UNK
     Route: 048
     Dates: start: 2006, end: 2008
  2. YASMIN [Suspect]
     Dosage: UNK
     Route: 048
     Dates: start: 2002, end: 2004
  3. ACIPHEX [Concomitant]
     Dosage: 20 MG, UNK
     Route: 048
     Dates: start: 20061119
  4. CLARITHROMYCIN [Concomitant]
     Dosage: 500 MG, UNK
     Route: 048
     Dates: start: 20061214

REACTIONS (3)
  - Biliary dyskinesia [None]
  - Internal injury [None]
  - Organ failure [None]
